FAERS Safety Report 15340640 (Version 1)
Quarter: 2018Q3

REPORT INFORMATION
  Report Type: Spontaneous
  Country: IE (occurrence: IE)
  Receive Date: 20180831
  Receipt Date: 20180831
  Transmission Date: 20181010
  Serious: Yes (Other)
  Sender: FDA-Public Use
  Company Number: IE-009507513-2009-195474-NL

PATIENT
  Age: 29 Year
  Sex: Female

DRUGS (5)
  1. YASMIN [Concomitant]
     Active Substance: DROSPIRENONE\ETHINYL ESTRADIOL
     Dosage: DOSE TEXT: 0.03MG/3MG, FREQUENCY: QD
  2. FOLIC ACID. [Concomitant]
     Active Substance: FOLIC ACID
     Dosage: 5 MG, QD
  3. LEXAPRO [Concomitant]
     Active Substance: ESCITALOPRAM OXALATE
     Dosage: 5 MG, QD
  4. IMPLANON [Suspect]
     Active Substance: ETONOGESTREL
     Indication: CONTRACEPTION
     Dosage: CONTINUING: UNK
     Route: 059
     Dates: start: 20081001
  5. GALFER [Concomitant]
     Active Substance: IRON
     Dosage: UNK DF, BID

REACTIONS (3)
  - Pregnancy with implant contraceptive [Unknown]
  - Pregnancy with implant contraceptive [Unknown]
  - Procedural complication [Unknown]

NARRATIVE: CASE EVENT DATE: 20090416
